FAERS Safety Report 18228049 (Version 1)
Quarter: 2020Q3

REPORT INFORMATION
  Report Type: Spontaneous
  Country: GB (occurrence: GB)
  Receive Date: 20200903
  Receipt Date: 20200903
  Transmission Date: 20201103
  Serious: Yes (Other)
  Sender: FDA-Public Use
  Company Number: GB-MYLANLABS-2020M1074978

PATIENT
  Age: 60 Year
  Sex: Female
  Weight: 56 kg

DRUGS (13)
  1. NAPROXEN. [Concomitant]
     Active Substance: NAPROXEN
     Dosage: TAKE WITH OR JUST ...
     Dates: start: 20200713, end: 20200720
  2. OMEPRAZOLE. [Concomitant]
     Active Substance: OMEPRAZOLE
     Dosage: TAKE ALONGSIDE ANTI?INFLAMMATOR...
     Dates: start: 20200713
  3. CLOTRIMAZOLE. [Concomitant]
     Active Substance: CLOTRIMAZOLE
     Dosage: APPLY TO THE AFFECTED AREA(S) TWO TO THREE TIME...
     Dates: start: 20200728
  4. TOPIRAMATE. [Concomitant]
     Active Substance: TOPIRAMATE
     Dosage: 2 DOSAGE FORM, QD
     Dates: start: 20191209
  5. PREGABALIN. [Suspect]
     Active Substance: PREGABALIN
     Indication: PRODUCT USED FOR UNKNOWN INDICATION
     Dosage: AT NIGHT AND AFTER 5 DAYS TO INCREA...
     Dates: start: 20200518
  6. NYSTAN [Concomitant]
     Active Substance: NYSTATIN
     Dosage: DROP
     Dates: start: 20200706, end: 20200713
  7. OTOMIZE EAR SPRAY [Concomitant]
     Indication: EAR DISORDER
     Dosage: SPRAY ONE PUFF INTO THE AFFECTED EAR(S), THREE ...
     Dates: start: 20200706, end: 20200713
  8. MOMETASONE [Concomitant]
     Active Substance: MOMETASONE
     Dosage: EACH NOSTRIL.
     Dates: start: 20200728
  9. PROPRANOLOL [Concomitant]
     Active Substance: PROPRANOLOL HYDROCHLORIDE
     Dosage: 2 DOSAGE FORM, QD
     Dates: start: 20200511
  10. GENTAMICIN. [Concomitant]
     Active Substance: GENTAMICIN
     Dosage: 2?4 DROPS EACH EAR TDS FOR 1 WEEK
     Dates: start: 20200723
  11. AMITRIPTYLINE HYDROCHLORIDE. [Concomitant]
     Active Substance: AMITRIPTYLINE HYDROCHLORIDE
     Dosage: AT NIGHT.
     Dates: start: 20200722
  12. SOFRADEX                           /00659601/ [Concomitant]
     Dosage: USE AS DIRECTED
     Dates: start: 20200722, end: 20200723
  13. CIPROFLOXACIN. [Concomitant]
     Active Substance: CIPROFLOXACIN
     Dosage: RIGHT EAR
     Dates: start: 20200728

REACTIONS (1)
  - Tongue blistering [Unknown]

NARRATIVE: CASE EVENT DATE: 20200608
